FAERS Safety Report 6682988-1 (Version None)
Quarter: 2010Q2

REPORT INFORMATION
  Report Type: 
  Country: None (occurrence: None)
  Receive Date: 20100415
  Receipt Date: 20100408
  Transmission Date: 20101027
  Serious: Yes (Disabling)
  Sender: FDA-Public Use
  Company Number: FR-ROCHE-696644

PATIENT
  Sex: Female

DRUGS (3)
  1. HERCEPTIN [Suspect]
     Indication: BREAST CANCER
     Route: 042
     Dates: start: 20071201, end: 20081101
  2. TAXOTERE [Suspect]
     Indication: BREAST CANCER
     Route: 042
     Dates: start: 20071201, end: 20080301
  3. ARIMIDEX [Concomitant]
     Indication: BREAST CANCER
     Route: 048
     Dates: start: 20080601

REACTIONS (1)
  - ALOPECIA [None]
